FAERS Safety Report 9518059 (Version 1)
Quarter: 2013Q3

REPORT INFORMATION
  Report Type: Spontaneous
  Country: US (occurrence: US)
  Receive Date: 20130912
  Receipt Date: 20130912
  Transmission Date: 20140515
  Serious: No
  Sender: FDA-Public Use
  Company Number: US-PFIZER INC-2013262163

PATIENT
  Age: 62 Year
  Sex: Female
  Weight: 77.1 kg

DRUGS (2)
  1. CHANTIX [Suspect]
     Indication: SMOKING CESSATION THERAPY
     Dosage: UNK
     Dates: start: 20130801
  2. CHANTIX [Suspect]
     Dosage: 1 MG, UNK
     Dates: start: 201308, end: 201308

REACTIONS (3)
  - Malaise [Unknown]
  - Insomnia [Unknown]
  - Decreased appetite [Unknown]
